FAERS Safety Report 4986656-3 (Version None)
Quarter: 2006Q2

REPORT INFORMATION
  Report Type: 
  Country: None (occurrence: None)
  Receive Date: 20060428
  Receipt Date: 20030605
  Transmission Date: 20061013
  Serious: Yes (Hospitalization, Disabling, Other)
  Sender: FDA-Public Use
  Company Number: US-MERCK-0306USA00824

PATIENT
  Age: 39 Year
  Sex: Male
  Weight: 82 kg

DRUGS (2)
  1. VIOXX [Suspect]
     Indication: OSTEOARTHRITIS
     Route: 048
     Dates: start: 20001008, end: 20011024
  2. VIOXX [Suspect]
     Route: 048
     Dates: start: 20001008, end: 20011024

REACTIONS (5)
  - ARTHROPATHY [None]
  - CONVULSION [None]
  - DEPRESSION [None]
  - HEADACHE [None]
  - HYPERTENSION [None]
